FAERS Safety Report 11937100 (Version 1)
Quarter: 2016Q1

REPORT INFORMATION
  Report Type: Spontaneous
  Country: DE (occurrence: DE)
  Receive Date: 20160121
  Receipt Date: 20160121
  Transmission Date: 20160526
  Serious: Yes (Other)
  Sender: FDA-Public Use
  Company Number: DE-TEVA-625949GER

PATIENT
  Age: 62 Year
  Sex: Male

DRUGS (4)
  1. MABTHERA [Suspect]
     Active Substance: RITUXIMAB
     Indication: LYMPHOMA
     Dosage: 375 MG/M2 ON DAY 1 OF EACH CYCLE, EVERY 28 DAYS
     Route: 042
  2. CHLORAMBUCIL [Suspect]
     Active Substance: CHLORAMBUCIL
     Indication: LYMPHOMA
     Dosage: 3 X 3 MG/M2 ON DAYS 3-7, EVERY 28 DAYS
     Route: 048
  3. PREDNISOLONE. [Concomitant]
     Active Substance: PREDNISOLONE
     Indication: LYMPHOMA
     Dosage: 25 MG/M2 ON DAYS 3-7 OF EVERY CYCLE, EVERY 28 DAYS
     Route: 048
  4. MITOXANTRONE [Suspect]
     Active Substance: MITOXANTRONE HYDROCHLORIDE
     Indication: LYMPHOMA
     Dosage: 8 MG/M2 ON DAY 3 AND DAY 4 OF EACH CYCLE, EVERY 28 DAYS
     Route: 042

REACTIONS (2)
  - Cardiomyopathy [Recovered/Resolved with Sequelae]
  - Atrial fibrillation [Recovered/Resolved with Sequelae]
